FAERS Safety Report 8158906-6 (Version None)
Quarter: 2012Q1

REPORT INFORMATION
  Report Type: 
  Country: None (occurrence: None)
  Receive Date: 20120217
  Receipt Date: 20120207
  Transmission Date: 20120608
  Serious: Yes (Other)
  Sender: FDA-Public Use
  Company Number: TPA2012A00720

PATIENT
  Age: 69 Year
  Sex: Female
  Weight: 47.6277 kg

DRUGS (2)
  1. DEXILANT [Suspect]
     Indication: GASTROOESOPHAGEAL REFLUX DISEASE
     Dosage: 60 MG, 1 IN 1 D, ORAL
     Route: 048
     Dates: start: 20111001, end: 20120204
  2. RANITIDINE HYDROCHLORIDE [Concomitant]

REACTIONS (1)
  - CARDIAC FLUTTER [None]
